FAERS Safety Report 16528790 (Version 1)
Quarter: 2019Q3

REPORT INFORMATION
  Report Type: Spontaneous
  Country: US (occurrence: US)
  Receive Date: 20190703
  Receipt Date: 20190703
  Transmission Date: 20191004
  Serious: Yes (Other)
  Sender: FDA-Public Use
  Company Number: US-BAUSCH-BL-2019-018790

PATIENT
  Sex: Female

DRUGS (1)
  1. ADVANCED EYE RELIEF/EYE WASH [Suspect]
     Active Substance: WATER
     Indication: PRODUCT USED FOR UNKNOWN INDICATION
     Dosage: USED THE PRODUCT LAST MONTH, EYE WASH
     Route: 047
     Dates: start: 201905

REACTIONS (1)
  - Conjunctivitis bacterial [Not Recovered/Not Resolved]

NARRATIVE: CASE EVENT DATE: 2019
